FAERS Safety Report 7375610-2 (Version None)
Quarter: 2011Q1

REPORT INFORMATION
  Report Type: 
  Country: None (occurrence: None)
  Receive Date: 20110325
  Receipt Date: 20110223
  Transmission Date: 20110831
  Serious: No
  Sender: FDA-Public Use
  Company Number: US-BAYER-2011-018522

PATIENT
  Age: 19 Year

DRUGS (3)
  1. ACETAMINOPHEN [Concomitant]
     Indication: ARTHRALGIA
  2. ALEVE (CAPLET) [Suspect]
     Indication: ARTHRALGIA
  3. IBUPROFEN [Suspect]
     Indication: ARTHRALGIA

REACTIONS (1)
  - ARTHRALGIA [None]
